FAERS Safety Report 4359530-3 (Version None)
Quarter: 2004Q2

REPORT INFORMATION
  Report Type: 
  Country: None (occurrence: None)
  Receive Date: 20040514
  Receipt Date: 20040514
  Transmission Date: 20050107
  Serious: Yes (Hospitalization)
  Sender: FDA-Public Use
  Company Number: None

PATIENT
  Age: 64 Year
  Sex: Male

DRUGS (3)
  1. HYDROCHLOROTHIAZIDE [Suspect]
     Indication: HYPERTENSION
     Dosage: 25 MG QD
     Dates: start: 20031204
  2. TYLENOL W/ CODEINE NO. 3 [Concomitant]
  3. CITALOPRAM [Concomitant]

REACTIONS (1)
  - HYPONATRAEMIA [None]
